FAERS Safety Report 5868504-2 (Version None)
Quarter: 2008Q3

REPORT INFORMATION
  Report Type: 
  Country: None (occurrence: None)
  Receive Date: 20080828
  Receipt Date: 20080814
  Transmission Date: 20090109
  Serious: Yes (Hospitalization)
  Sender: FDA-Public Use
  Company Number: 237678J08USA

PATIENT
  Age: 46 Year
  Sex: Female

DRUGS (2)
  1. REBIF [Suspect]
     Indication: MULTIPLE SCLEROSIS
     Dosage: 44 MCG, 3 IN 1 WEEKS, SUBCUTANEOUS
     Route: 058
     Dates: start: 20071019
  2. PREDNISONE TAB [Concomitant]

REACTIONS (8)
  - BLOOD PRESSURE ABNORMAL [None]
  - BRAIN NEOPLASM [None]
  - CATHETER SITE SWELLING [None]
  - CYSTITIS INTERSTITIAL [None]
  - INJECTION SITE ERYTHEMA [None]
  - INJECTION SITE PRURITUS [None]
  - INJECTION SITE RASH [None]
  - LATEX ALLERGY [None]
